FAERS Safety Report 4625742-4 (Version None)
Quarter: 2005Q1

REPORT INFORMATION
  Report Type: 
  Country: None (occurrence: None)
  Receive Date: 20050330
  Receipt Date: 20050315
  Transmission Date: 20050727
  Serious: Yes (Death, Life-Threatening, Hospitalization)
  Sender: FDA-Public Use
  Company Number: 213108

PATIENT
  Age: 47 Year
  Sex: Female

DRUGS (4)
  1. MABTHERA (RITUXIMAB) CONC FOR SOLUTION FOR INFUSION [Suspect]
     Indication: LYMPHOMA
     Dosage: 375 UG/M2, INTRAVENOUS
     Route: 042
     Dates: start: 20041125, end: 20041125
  2. FLUCONAZOLE [Concomitant]
  3. ACICLOVIR (ACYCLOVIR) [Concomitant]
  4. SULFAMETHOXAZOLE + TRIMETHOPRIM [Concomitant]

REACTIONS (9)
  - BLOOD IMMUNOGLOBULIN A DECREASED [None]
  - BLOOD IMMUNOGLOBULIN M DECREASED [None]
  - CHEST PAIN [None]
  - DYSPNOEA [None]
  - HAEMOGLOBIN DECREASED [None]
  - LUNG CONSOLIDATION [None]
  - NEUTROPHIL COUNT ABNORMAL [None]
  - PNEUMONIA [None]
  - WHITE BLOOD CELL COUNT DECREASED [None]
